FAERS Safety Report 5239698-7 (Version None)
Quarter: 2007Q1

REPORT INFORMATION
  Report Type: 
  Country: None (occurrence: None)
  Receive Date: 20070216
  Receipt Date: 20070209
  Transmission Date: 20070707
  Serious: Yes (Death, Life-Threatening, Hospitalization)
  Sender: FDA-Public Use
  Company Number: US-SANOFI-SYNTHELABO-F03200700020

PATIENT
  Sex: Male
  Weight: 76.2 kg

DRUGS (9)
  1. OXALIPLATIN [Suspect]
     Indication: PLEURAL MESOTHELIOMA
     Route: 042
     Dates: start: 20070111, end: 20070111
  2. HYDROCHLOROTHIAZIDE [Concomitant]
     Dosage: UNK
     Route: 048
  3. ASPIRIN [Concomitant]
     Dosage: UNK
     Route: 048
  4. NIASPAN [Concomitant]
     Dosage: UNK
     Route: 048
  5. ZOCOR [Concomitant]
     Dosage: UNK
     Route: 048
  6. FOLIC ACID [Concomitant]
     Dosage: UNK
     Route: 048
  7. PROSCAR [Concomitant]
     Dosage: UNK
     Route: 048
  8. ALTACE [Concomitant]
     Dosage: UNK
     Route: 048
  9. GEMCITABINE [Suspect]
     Indication: PLEURAL MESOTHELIOMA
     Route: 042
     Dates: start: 20070111, end: 20070111

REACTIONS (3)
  - ANAEMIA [None]
  - CARDIO-RESPIRATORY ARREST [None]
  - PULMONARY EMBOLISM [None]
